FAERS Safety Report 7449055-0 (Version None)
Quarter: 2011Q2

REPORT INFORMATION
  Report Type: 
  Country: None (occurrence: None)
  Receive Date: 20110429
  Receipt Date: 20110426
  Transmission Date: 20111010
  Serious: Yes (Hospitalization)
  Sender: FDA-Public Use
  Company Number: GB-AMGEN-GBRCT2010009110

PATIENT
  Age: 60 Year
  Sex: Male

DRUGS (5)
  1. PANITUMUMAB [Suspect]
     Dosage: UNK
     Dates: start: 20100922
  2. CAPECITABINE [Concomitant]
     Dosage: UNK
     Dates: start: 20100922, end: 20101222
  3. EPIRUBICIN HYDROCHLORIDE [Concomitant]
     Dosage: UNK
     Dates: start: 20100922
  4. DOXICYCLINE [Concomitant]
     Dosage: 200 MG, QD
     Dates: start: 20101001
  5. OXALIPLATIN [Concomitant]
     Dosage: UNK
     Dates: start: 20100922

REACTIONS (4)
  - DIARRHOEA [None]
  - HYPOMAGNESAEMIA [None]
  - FEBRILE NEUTROPENIA [None]
  - HYPOCALCAEMIA [None]
